FAERS Safety Report 7814670-9 (Version None)
Quarter: 2011Q4

REPORT INFORMATION
  Report Type: 
  Country: None (occurrence: None)
  Receive Date: 20111014
  Receipt Date: 20110927
  Transmission Date: 20120403
  Serious: Yes (Hospitalization, Other)
  Sender: FDA-Public Use
  Company Number: PL-ROCHE-1000871

PATIENT
  Sex: Female

DRUGS (1)
  1. MABTHERA [Suspect]
     Indication: LYMPHOCYTIC LEUKAEMIA

REACTIONS (6)
  - TRACHEO-OESOPHAGEAL FISTULA [None]
  - SPLENIC INFARCTION [None]
  - SKIN ULCER [None]
  - SPLENIC NECROSIS [None]
  - HYPOGAMMAGLOBULINAEMIA [None]
  - SEPSIS [None]
